FAERS Safety Report 13697398 (Version 1)
Quarter: 2017Q2

REPORT INFORMATION
  Report Type: Spontaneous
  Country: US (occurrence: US)
  Receive Date: 20170628
  Receipt Date: 20170628
  Transmission Date: 20170830
  Serious: Yes (Disabling)
  Sender: FDA-Public Use
  Company Number: None

PATIENT
  Age: 80 Year
  Sex: Male
  Weight: 95.26 kg

DRUGS (5)
  1. LIALDA [Suspect]
     Active Substance: MESALAMINE
     Indication: COLITIS
     Dosage: ?          QUANTITY:IN TABLET?;;?
     Route: 048
     Dates: start: 20160119, end: 20160308
  2. VITAMIN C [Concomitant]
     Active Substance: ASCORBIC ACID
  3. PHENYTOIN. [Concomitant]
     Active Substance: PHENYTOIN
  4. FERROUS SULFATE. [Concomitant]
     Active Substance: FERROUS SULFATE
  5. MULTIVITAMIN [Concomitant]
     Active Substance: VITAMINS

REACTIONS (4)
  - Rash [None]
  - Visual impairment [None]
  - Pruritus [None]
  - Alopecia [None]

NARRATIVE: CASE EVENT DATE: 20170608
